FAERS Safety Report 10685713 (Version 1)
Quarter: 2014Q4

REPORT INFORMATION
  Report Type: Spontaneous
  Country: US (occurrence: US)
  Receive Date: 20141231
  Receipt Date: 20141231
  Transmission Date: 20150529
  Serious: No
  Sender: FDA-Public Use
  Company Number: US-PFIZER INC-2014358143

PATIENT

DRUGS (4)
  1. ATIVAN [Suspect]
     Active Substance: LORAZEPAM
     Indication: PAIN
     Dosage: 2 DF DAILY (2 ATIVAN A DAY)
  2. NEURONTIN [Suspect]
     Active Substance: GABAPENTIN
     Indication: PAIN
     Dosage: UNK
  3. METHOTREXATE [Suspect]
     Active Substance: METHOTREXATE
     Indication: PAIN
     Dosage: UNK
  4. CYMBALTA [Suspect]
     Active Substance: DULOXETINE HYDROCHLORIDE
     Indication: PAIN
     Dosage: UNK

REACTIONS (3)
  - Weight increased [Unknown]
  - Drug ineffective [Unknown]
  - Alopecia [Unknown]
